FAERS Safety Report 21648951 (Version 3)
Quarter: 2025Q2

REPORT INFORMATION
  Report Type: Spontaneous
  Country: PL (occurrence: PL)
  Receive Date: 20221128
  Receipt Date: 20250531
  Transmission Date: 20250717
  Serious: Yes (Hospitalization, Other)
  Sender: AUROBINDO
  Company Number: PL-Merck Healthcare KGaA-9363849

PATIENT
  Age: 37 Year
  Sex: Female

DRUGS (5)
  1. BISOPROLOL [Suspect]
     Active Substance: BISOPROLOL
     Indication: Myocarditis
     Route: 065
     Dates: start: 2014
  2. METOPROLOL [Suspect]
     Active Substance: METOPROLOL
     Indication: Cardiomyopathy
     Route: 065
  3. EPLERENONE [Suspect]
     Active Substance: EPLERENONE
     Indication: Myocarditis
     Route: 065
     Dates: start: 2014
  4. IRON [Suspect]
     Active Substance: IRON
     Indication: Product used for unknown indication
     Route: 065
  5. METHYLDOPA [Suspect]
     Active Substance: METHYLDOPA
     Indication: Product used for unknown indication
     Route: 065

REACTIONS (5)
  - Foetal death [Unknown]
  - Maternal exposure during pregnancy [Unknown]
  - Drug ineffective [Recovering/Resolving]
  - Cardiomyopathy [Recovering/Resolving]
  - Off label use [Unknown]
